FAERS Safety Report 19645354 (Version 1)
Quarter: 2021Q3

REPORT INFORMATION
  Report Type: Spontaneous
  Country: US (occurrence: US)
  Receive Date: 20210802
  Receipt Date: 20210802
  Transmission Date: 20211014
  Serious: Yes (Other)
  Sender: FDA-Public Use
  Company Number: US-AMGEN-USASP2021116509

PATIENT
  Age: 74 Year
  Sex: Male

DRUGS (16)
  1. GABAPENTIN. [Concomitant]
     Active Substance: GABAPENTIN
     Dosage: UNK
  2. NIFEDIPIN [Concomitant]
     Active Substance: NIFEDIPINE
     Dosage: UNK
  3. TRULICITY [Concomitant]
     Active Substance: DULAGLUTIDE
     Dosage: UNK
  4. LABETALOL [Concomitant]
     Active Substance: LABETALOL\LABETALOL HYDROCHLORIDE
     Dosage: UNK
  5. METFORMIN [Concomitant]
     Active Substance: METFORMIN HYDROCHLORIDE
     Dosage: UNK
  6. LEVOTHYROXINE. [Concomitant]
     Active Substance: LEVOTHYROXINE
     Dosage: UNK
  7. OTEZLA [Suspect]
     Active Substance: APREMILAST
     Indication: OFF LABEL USE
  8. AMITRIPTILIN [Concomitant]
     Active Substance: AMITRIPTYLINE HYDROCHLORIDE
     Dosage: UNK
  9. IBUPROFEN. [Concomitant]
     Active Substance: IBUPROFEN
     Dosage: UNK
  10. MORPHINE [Concomitant]
     Active Substance: MORPHINE
     Dosage: UNK
  11. LOSARTAN. [Concomitant]
     Active Substance: LOSARTAN
     Dosage: UNK
  12. ATORVASTATIN [Concomitant]
     Active Substance: ATORVASTATIN
  13. TIZANIDINE. [Concomitant]
     Active Substance: TIZANIDINE
     Dosage: UNK
  14. NORCO [Concomitant]
     Active Substance: ACETAMINOPHEN\HYDROCODONE BITARTRATE
     Dosage: UNK
  15. PANTOPRAZOLE [Concomitant]
     Active Substance: PANTOPRAZOLE
     Dosage: UNK
  16. OTEZLA [Suspect]
     Active Substance: APREMILAST
     Indication: RHEUMATOID ARTHRITIS
     Dosage: 30 MILLIGRAM, BID
     Route: 048
     Dates: start: 20210121

REACTIONS (2)
  - Rheumatoid arthritis [Not Recovered/Not Resolved]
  - Off label use [Unknown]

NARRATIVE: CASE EVENT DATE: 2021
